FAERS Safety Report 7122106-9 (Version None)
Quarter: 2010Q4

REPORT INFORMATION
  Report Type: 
  Country: None (occurrence: None)
  Receive Date: 20101124
  Receipt Date: 20101119
  Transmission Date: 20110411
  Serious: Yes (Life-Threatening, Hospitalization, Disabling, Other)
  Sender: FDA-Public Use
  Company Number: PHHO2010US16310

PATIENT
  Sex: Female
  Weight: 80 kg

DRUGS (13)
  1. ACZ885 [Suspect]
     Indication: JUVENILE ARTHRITIS
  2. CYCLOSPORINE [Suspect]
     Indication: HISTIOCYTOSIS HAEMATOPHAGIC
     Dosage: UNK
     Dates: start: 20101027
  3. BLINDED ACZ885 ACZ+ [Suspect]
     Indication: JUVENILE ARTHRITIS
     Dosage: NO TREATMENT
  4. BLINDED NO TREATMENT RECEIVED NOMED [Suspect]
     Indication: JUVENILE ARTHRITIS
     Dosage: NO TREATMENT
  5. PLACEBO [Suspect]
     Indication: JUVENILE ARTHRITIS
     Dosage: NO TREATMENT
  6. SOLU-CORTEF [Suspect]
  7. DEXAMETHASONE [Suspect]
  8. RANITIDINE [Concomitant]
  9. MULTI-VITAMINS [Concomitant]
  10. CALTRATE +D [Concomitant]
  11. ZYRTEC [Concomitant]
  12. PREDNISONE [Concomitant]
  13. MOTRIN [Concomitant]

REACTIONS (38)
  - ABDOMINAL PAIN [None]
  - AGITATION [None]
  - ANAEMIA [None]
  - BLOOD GLUCOSE INCREASED [None]
  - BREATH SOUNDS ABNORMAL [None]
  - CARDIOMEGALY [None]
  - CONVULSION [None]
  - COUGH [None]
  - DEHYDRATION [None]
  - DISEASE PROGRESSION [None]
  - DISORIENTATION [None]
  - DRUG INEFFECTIVE [None]
  - ENDOTRACHEAL INTUBATION [None]
  - EPSTEIN-BARR VIRUS INFECTION [None]
  - GASTROENTERITIS [None]
  - HEPATOSPLENOMEGALY [None]
  - HISTIOCYTOSIS HAEMATOPHAGIC [None]
  - HYPOPHAGIA [None]
  - HYPOTENSION [None]
  - KLEBSIELLA TEST POSITIVE [None]
  - LEUKOPENIA [None]
  - LIVER FUNCTION TEST ABNORMAL [None]
  - LUNG INFILTRATION [None]
  - MECHANICAL VENTILATION [None]
  - MENTAL STATUS CHANGES [None]
  - MYALGIA [None]
  - NAUSEA [None]
  - PANCYTOPENIA [None]
  - PLEURAL EFFUSION [None]
  - PNEUMONIA [None]
  - PULMONARY OEDEMA [None]
  - PYREXIA [None]
  - RESPIRATORY DISTRESS [None]
  - REVERSIBLE POSTERIOR LEUKOENCEPHALOPATHY SYNDROME [None]
  - THROMBOCYTOPENIA [None]
  - UPPER RESPIRATORY TRACT INFECTION [None]
  - VENTRICULAR EXTRASYSTOLES [None]
  - VOMITING [None]
